FAERS Safety Report 7618502-3 (Version None)
Quarter: 2011Q3

REPORT INFORMATION
  Report Type: 
  Country: None (occurrence: None)
  Receive Date: 20110718
  Receipt Date: 20110712
  Transmission Date: 20111222
  Serious: No
  Sender: FDA-Public Use
  Company Number: US-PFIZER INC-2011157567

PATIENT
  Age: 65 Year
  Sex: Female

DRUGS (1)
  1. PREMARIN [Suspect]
     Dosage: UNK

REACTIONS (4)
  - BREAST TENDERNESS [None]
  - MUSCLE SPASMS [None]
  - VULVOVAGINAL SWELLING [None]
  - BURNING SENSATION [None]
